FAERS Safety Report 24412905 (Version 1)
Quarter: 2024Q4

REPORT INFORMATION
  Report Type: Spontaneous
  Country: FR (occurrence: FR)
  Receive Date: 20241008
  Receipt Date: 20241008
  Transmission Date: 20250114
  Serious: Yes (Life-Threatening, Hospitalization)
  Sender: CHEMISCHE FABRIK KREUSSLER
  Company Number: FR-CHEMISCHE FABRIK KREUSSLER-ae010FR24

PATIENT
  Age: 25 Year
  Sex: Female

DRUGS (1)
  1. AETOXISCLEROL [Suspect]
     Active Substance: POLIDOCANOL
     Indication: Product used for unknown indication
     Route: 042
     Dates: start: 202409

REACTIONS (2)
  - Cardiac arrest [Recovered/Resolved]
  - Illness [Unknown]

NARRATIVE: CASE EVENT DATE: 20240901
